FAERS Safety Report 11829169 (Version 1)
Quarter: 2015Q4

REPORT INFORMATION
  Report Type: Spontaneous
  Country: FR (occurrence: FR)
  Receive Date: 20151211
  Receipt Date: 20151211
  Transmission Date: 20160305
  Serious: Yes (Hospitalization, Disabling)
  Sender: FDA-Public Use
  Company Number: FR-PFIZER INC-2015434794

PATIENT
  Age: 13 Year
  Sex: Female

DRUGS (10)
  1. LARGACTIL /00011901/ [Suspect]
     Active Substance: CHLORPROMAZINE
     Dosage: 875 MG, SINGLE(35 TABLETS OF 25 MG)
     Route: 048
     Dates: start: 20151102, end: 20151102
  2. EFFEXOR LP [Suspect]
     Active Substance: VENLAFAXINE HYDROCHLORIDE
     Dosage: 1425 MG (75 MG X 19), SINGLE
     Route: 048
     Dates: start: 20151102, end: 20151102
  3. TEGRETOL [Suspect]
     Active Substance: CARBAMAZEPINE
     Dosage: 8 G (400 MG X 20), SINGLE
     Route: 048
     Dates: start: 20151102, end: 20151102
  4. ZOLPIDEM [Suspect]
     Active Substance: ZOLPIDEM\ZOLPIDEM TARTRATE
     Dosage: 140 MG (10 MG X 14), SINGLE
     Route: 048
     Dates: start: 20151102, end: 20151102
  5. TERALITHE [Suspect]
     Active Substance: LITHIUM CARBONATE
     Dosage: 12 G (400MG X 30), SINGLE
     Route: 048
     Dates: start: 20151102, end: 20151102
  6. TERCIAN /00759301/ [Concomitant]
     Active Substance: CYAMEMAZINE
     Dosage: 25 MG, UNK
  7. EFFEXOR LP [Suspect]
     Active Substance: VENLAFAXINE HYDROCHLORIDE
     Dosage: 75 MG, UNK
     Route: 048
  8. SERESTA [Suspect]
     Active Substance: OXAZEPAM
     Dosage: 1 G (50 MG X 20), SINGLE
     Route: 048
     Dates: start: 20151102, end: 20151102
  9. LARGACTIL /00011901/ [Suspect]
     Active Substance: CHLORPROMAZINE
     Dosage: 25 MG, UNK
     Route: 048
  10. MELATONIN [Concomitant]
     Active Substance: MELATONIN
     Dosage: 6 MG, DAILY

REACTIONS (8)
  - Serotonin syndrome [Recovered/Resolved]
  - Mydriasis [Recovered/Resolved]
  - Suicide attempt [Unknown]
  - Coma [Recovered/Resolved]
  - Product use issue [Unknown]
  - Tachycardia [Recovered/Resolved]
  - Overdose [Unknown]
  - Hyperreflexia [Recovered/Resolved]

NARRATIVE: CASE EVENT DATE: 20151102
